FAERS Safety Report 18740893 (Version 1)
Quarter: 2021Q1

REPORT INFORMATION
  Report Type: Spontaneous
  Country: US (occurrence: US)
  Receive Date: 20210114
  Receipt Date: 20210114
  Transmission Date: 20210419
  Serious: Yes (Hospitalization)
  Sender: FDA-Public Use
  Company Number: None

PATIENT
  Age: 44 Year
  Sex: Female
  Weight: 105.69 kg

DRUGS (2)
  1. NEXPLANON [Suspect]
     Active Substance: ETONOGESTREL
     Indication: CONTRACEPTION
     Dosage: FREQUENCY: EVERY 3 YEARS
     Route: 058
     Dates: start: 20200629, end: 20210105
  2. NEXPLANON [Concomitant]
     Active Substance: ETONOGESTREL
     Dates: start: 20200629, end: 20210105

REACTIONS (2)
  - Menorrhagia [None]
  - Haemoglobin decreased [None]

NARRATIVE: CASE EVENT DATE: 20210105
